FAERS Safety Report 24958440 (Version 1)
Quarter: 2025Q1

REPORT INFORMATION
  Report Type: Spontaneous
  Country: US (occurrence: US)
  Receive Date: 20250212
  Receipt Date: 20250212
  Transmission Date: 20250409
  Serious: Yes (Hospitalization, Other)
  Sender: RANBAXY
  Company Number: US-SUN PHARMACEUTICAL INDUSTRIES LTD-2025R1-493141

PATIENT
  Age: 30 Year
  Sex: Male

DRUGS (2)
  1. BUPROPION [Suspect]
     Active Substance: BUPROPION
     Indication: Product used for unknown indication
     Dosage: 150 MILLIGRAM, DAILY
     Route: 065
  2. BUPROPION [Suspect]
     Active Substance: BUPROPION
     Dosage: 300 MILLIGRAM, DAILY
     Route: 065

REACTIONS (5)
  - Drug abuse [Unknown]
  - Intentional product misuse [Unknown]
  - Mania [Recovering/Resolving]
  - Overdose [Unknown]
  - Wrong technique in product usage process [Unknown]
